FAERS Safety Report 17461745 (Version 1)
Quarter: 2020Q1

REPORT INFORMATION
  Report Type: Spontaneous
  Country: JP (occurrence: JP)
  Receive Date: 20200226
  Receipt Date: 20200226
  Transmission Date: 20200409
  Serious: Yes (Hospitalization, Other)
  Sender: FDA-Public Use
  Company Number: NVSC2020JP051878

PATIENT
  Age: 71 Year
  Sex: Male

DRUGS (2)
  1. LENALIDOMIDE [Suspect]
     Active Substance: LENALIDOMIDE
     Indication: PLASMACYTOMA
     Dosage: FROM DAY 1 TO DAY 21
     Route: 065
     Dates: start: 201601
  2. DEXAMETHASONE. [Suspect]
     Active Substance: DEXAMETHASONE
     Indication: PLASMACYTOMA
     Dosage: ON DAYS 1, 8, 15 AND 22
     Route: 065
     Dates: start: 201601

REACTIONS (4)
  - Product use in unapproved indication [Unknown]
  - Epigastric discomfort [Recovered/Resolved]
  - Rash [Recovered/Resolved]
  - Disseminated cryptococcosis [Recovered/Resolved]
